FAERS Safety Report 21271316 (Version 7)
Quarter: 2022Q4

REPORT INFORMATION
  Report Type: Spontaneous
  Country: JP (occurrence: JP)
  Receive Date: 20220830
  Receipt Date: 20221102
  Transmission Date: 20230113
  Serious: Yes (Hospitalization, Disabling, Other)
  Sender: FDA-Public Use
  Company Number: JP-AMGEN-JPNSP2022147615

PATIENT
  Age: 71 Year
  Sex: Male
  Weight: 50 kg

DRUGS (7)
  1. LUMAKRAS [Suspect]
     Active Substance: SOTORASIB
     Indication: Non-small cell lung cancer
     Dosage: 240 MILLIGRAM, QD
     Route: 048
     Dates: start: 20220630
  2. LUMAKRAS [Suspect]
     Active Substance: SOTORASIB
     Indication: K-ras gene mutation
     Dosage: 240 MILLIGRAM, QD
     Route: 048
     Dates: start: 202208
  3. WARFARIN [Suspect]
     Active Substance: WARFARIN
     Indication: Prophylaxis
     Dosage: 1 MILLIGRAM, QD
     Route: 065
  4. WARFARIN [Suspect]
     Active Substance: WARFARIN
     Indication: Atrial fibrillation
     Dosage: 2 MILLIGRAM
     Route: 065
  5. BISOPROLOL FUMARATE [Concomitant]
     Active Substance: BISOPROLOL FUMARATE
     Indication: Atrial fibrillation
     Dosage: 5 MILLIGRAM, QD
  6. VERAPAMIL [Concomitant]
     Active Substance: VERAPAMIL HYDROCHLORIDE
     Indication: Atrial fibrillation
     Dosage: 40 MILLIGRAM, TID
  7. DIGOXIN [Concomitant]
     Active Substance: DIGOXIN
     Indication: Atrial fibrillation
     Dosage: 0.125 MILLIGRAM, QD

REACTIONS (3)
  - Cerebral infarction [Recovered/Resolved with Sequelae]
  - Prothrombin time shortened [Recovered/Resolved]
  - Drug interaction [Unknown]

NARRATIVE: CASE EVENT DATE: 20220101
